FAERS Safety Report 4525487-5 (Version None)
Quarter: 2004Q4

REPORT INFORMATION
  Report Type: 
  Country: None (occurrence: None)
  Receive Date: 20041210
  Receipt Date: 20041129
  Transmission Date: 20050328
  Serious: Yes (Other)
  Sender: FDA-Public Use
  Company Number: 203476

PATIENT
  Age: 61 Year
  Sex: Female

DRUGS (11)
  1. AVONEX [Suspect]
     Indication: MULTIPLE SCLEROSIS
     Dosage: 30 UG; QW; IM
     Route: 030
     Dates: start: 20030915
  2. NEURONTIN [Concomitant]
  3. TIZANIDINE HCL [Concomitant]
  4. OXYBUTYNIN [Concomitant]
  5. ATENOLOL [Concomitant]
  6. ALBUTEROL [Concomitant]
  7. NITROFURANTOIN [Concomitant]
  8. CELEBREX [Concomitant]
  9. PREMARIN [Concomitant]
  10. VICODIN [Concomitant]
  11. QVAR MDI [Concomitant]

REACTIONS (7)
  - ASTHENIA [None]
  - DEPRESSION [None]
  - DYSURIA [None]
  - FATIGUE [None]
  - HAEMATOCRIT DECREASED [None]
  - HAEMOGLOBIN DECREASED [None]
  - SPLENIC MARGINAL ZONE LYMPHOMA [None]
